FAERS Safety Report 16340936 (Version 2)
Quarter: 2020Q3

REPORT INFORMATION
  Report Type: Spontaneous
  Country: US (occurrence: US)
  Receive Date: 20190522
  Receipt Date: 20200831
  Transmission Date: 20201102
  Serious: Yes (Other)
  Sender: FDA-Public Use
  Company Number: US-GILEAD-2019-0407997

PATIENT
  Sex: Female
  Weight: 69.84 kg

DRUGS (32)
  1. TRUVADA [Suspect]
     Active Substance: EMTRICITABINE\TENOFOVIR DISOPROXIL FUMARATE
     Indication: HIV INFECTION
     Dosage: UNK
     Route: 048
     Dates: start: 2009, end: 2015
  2. CRIXIVAN [Concomitant]
     Active Substance: INDINAVIR SULFATE
  3. ZIAGEN [Concomitant]
     Active Substance: ABACAVIR SULFATE
  4. CELECOXIB. [Concomitant]
     Active Substance: CELECOXIB
  5. FOLIC ACID. [Concomitant]
     Active Substance: FOLIC ACID
  6. GABAPENTIN. [Concomitant]
     Active Substance: GABAPENTIN
  7. CYCLOBENZAPRINE. [Concomitant]
     Active Substance: CYCLOBENZAPRINE
  8. TRUVADA [Suspect]
     Active Substance: EMTRICITABINE\TENOFOVIR DISOPROXIL FUMARATE
     Dosage: UNK
     Route: 065
     Dates: start: 2005, end: 2014
  9. NORVIR [Concomitant]
     Active Substance: RITONAVIR
  10. BACLOFEN. [Concomitant]
     Active Substance: BACLOFEN
  11. FUROSEMIDE. [Concomitant]
     Active Substance: FUROSEMIDE
  12. PANTOPRAZOLE [Concomitant]
     Active Substance: PANTOPRAZOLE
  13. PROMETHAZINE HCL [Concomitant]
     Active Substance: PROMETHAZINE HYDROCHLORIDE
  14. INTELENCE [Concomitant]
     Active Substance: ETRAVIRINE
  15. PREZISTA [Concomitant]
     Active Substance: DARUNAVIR ETHANOLATE
  16. CLONIDINE HCL [Concomitant]
     Active Substance: CLONIDINE HYDROCHLORIDE
  17. ESTRADIOL. [Concomitant]
     Active Substance: ESTRADIOL
  18. REYATAZ [Concomitant]
     Active Substance: ATAZANAVIR SULFATE
  19. SUSTIVA [Concomitant]
     Active Substance: EFAVIRENZ
  20. CLONAZEPAM. [Concomitant]
     Active Substance: CLONAZEPAM
  21. PREVACID [Concomitant]
     Active Substance: LANSOPRAZOLE
  22. LAMICTAL [Concomitant]
     Active Substance: LAMOTRIGINE
  23. VIREAD [Suspect]
     Active Substance: TENOFOVIR DISOPROXIL FUMARATE
     Indication: HIV INFECTION
     Dosage: UNK
     Route: 065
     Dates: start: 2003, end: 2005
  24. KALETRA [Concomitant]
     Active Substance: LOPINAVIR\RITONAVIR
  25. COMBIVIR [Concomitant]
     Active Substance: LAMIVUDINE\ZIDOVUDINE
  26. LEXIVA [Concomitant]
     Active Substance: FOSAMPRENAVIR CALCIUM
  27. MELOXICAM. [Concomitant]
     Active Substance: MELOXICAM
  28. FAMOTIDINE. [Concomitant]
     Active Substance: FAMOTIDINE
  29. LAMOTRIGINE. [Concomitant]
     Active Substance: LAMOTRIGINE
  30. SEROQUEL [Concomitant]
     Active Substance: QUETIAPINE FUMARATE
  31. KLONOPIN [Concomitant]
     Active Substance: CLONAZEPAM
  32. VISTARIL [Concomitant]
     Active Substance: HYDROXYZINE PAMOATE

REACTIONS (17)
  - Hip fracture [Unknown]
  - Fear [Not Recovered/Not Resolved]
  - Pain [Not Recovered/Not Resolved]
  - Radius fracture [Not Recovered/Not Resolved]
  - Emotional distress [Not Recovered/Not Resolved]
  - Anxiety [Not Recovered/Not Resolved]
  - Osteoporosis [Not Recovered/Not Resolved]
  - Hand fracture [Unknown]
  - Anhedonia [Not Recovered/Not Resolved]
  - Post-traumatic stress disorder [Not Recovered/Not Resolved]
  - Femur fracture [Not Recovered/Not Resolved]
  - Quality of life decreased [Not Recovered/Not Resolved]
  - Wheelchair user [Not Recovered/Not Resolved]
  - Depression [Unknown]
  - Economic problem [Not Recovered/Not Resolved]
  - Tibia fracture [Not Recovered/Not Resolved]
  - General physical health deterioration [Not Recovered/Not Resolved]

NARRATIVE: CASE EVENT DATE: 2016
